FAERS Safety Report 19257673 (Version 2)
Quarter: 2021Q2

REPORT INFORMATION
  Report Type: Spontaneous
  Country: CN (occurrence: CN)
  Receive Date: 20210514
  Receipt Date: 20210520
  Transmission Date: 20210717
  Serious: Yes (Other)
  Sender: FDA-Public Use
  Company Number: CN-CHIESI-2021CHF02270

PATIENT
  Age: 38 Week
  Sex: Male
  Weight: 3 kg

DRUGS (2)
  1. CUROSURF [Suspect]
     Active Substance: PORACTANT ALFA
     Indication: NEONATAL RESPIRATORY DISTRESS SYNDROME
     Dosage: 360 MILLIGRAM
     Route: 038
     Dates: start: 20190111, end: 201901
  2. CUROSURF [Suspect]
     Active Substance: PORACTANT ALFA
     Dosage: 0.2 MILLILITER
     Route: 038
     Dates: start: 20190111, end: 201901

REACTIONS (2)
  - Anaphylactic shock [Recovered/Resolved]
  - Off label use [Recovered/Resolved]

NARRATIVE: CASE EVENT DATE: 20190111
